FAERS Safety Report 6544238-6 (Version None)
Quarter: 2010Q1

REPORT INFORMATION
  Report Type: 
  Country: None (occurrence: None)
  Receive Date: 20100120
  Receipt Date: 20100108
  Transmission Date: 20100710
  Serious: Yes (Hospitalization)
  Sender: FDA-Public Use
  Company Number: DE-ELI_LILLY_AND_COMPANY-DE201001001458

PATIENT
  Age: 48 Year
  Sex: Male

DRUGS (3)
  1. ZYPREXA [Suspect]
     Indication: SCHIZOPHRENIA, PARANOID TYPE
     Dosage: 5 MG, UNKNOWN
     Route: 048
     Dates: start: 20091021, end: 20090101
  2. ZYPREXA [Suspect]
     Dosage: 20 MG, UNKNOWN
     Route: 048
     Dates: start: 20090101, end: 20091110
  3. LORAZEPAM [Concomitant]
     Dosage: 3 MG, UNKNOWN
     Route: 065
     Dates: start: 20091031, end: 20091201

REACTIONS (2)
  - NEUTROPHIL COUNT DECREASED [None]
  - WHITE BLOOD CELL COUNT DECREASED [None]
